FAERS Safety Report 11150814 (Version 1)
Quarter: 2015Q2

REPORT INFORMATION
  Report Type: Spontaneous
  Country: US (occurrence: None)
  Receive Date: 20150528
  Receipt Date: 20150528
  Transmission Date: 20150821
  Serious: Yes (Death)
  Sender: FDA-Public Use
  Company Number: CIO15032732

PATIENT
  Age: 67 Year
  Sex: Male

DRUGS (2)
  1. ETHANOL (ETHANOL) [Suspect]
     Active Substance: ALCOHOL
  2. DIPHENHYDRAMINE HYDROCHLORIDE. [Suspect]
     Active Substance: DIPHENHYDRAMINE HYDROCHLORIDE

REACTIONS (3)
  - Overdose [None]
  - Accidental death [None]
  - Toxicity to various agents [None]
